FAERS Safety Report 8579239-X (Version None)
Quarter: 2012Q3

REPORT INFORMATION
  Report Type: 
  Country: None (occurrence: None)
  Receive Date: 20120808
  Receipt Date: 20120801
  Transmission Date: 20120928
  Serious: Yes (Hospitalization, Other)
  Sender: FDA-Public Use
  Company Number: US-ABBOTT-12P-163-0933432-00

PATIENT
  Sex: Female
  Weight: 62.198 kg

DRUGS (29)
  1. MULTI-VITAMIN [Concomitant]
     Indication: PRODUCT USED FOR UNKNOWN INDICATION
     Dosage: DAILY
  2. CARDIZEM [Suspect]
     Indication: ATRIAL FIBRILLATION
  3. METHOTREXATE [Concomitant]
     Dosage: 3 TABS WEEKLY
  4. FOLIC ACID [Concomitant]
     Indication: PRODUCT USED FOR UNKNOWN INDICATION
     Dosage: 1 MG DAILY
     Route: 048
  5. PROTONIX [Concomitant]
     Indication: GASTROOESOPHAGEAL REFLUX DISEASE
     Dosage: 40 MG DAILY
  6. ZOCOR [Concomitant]
     Indication: PRODUCT USED FOR UNKNOWN INDICATION
     Dosage: 20 MG DAILY
  7. FISH OIL [Concomitant]
     Indication: PRODUCT USED FOR UNKNOWN INDICATION
     Dosage: 2 TABLETS DAILY
  8. CLOBETASOL PROPIONATE [Concomitant]
     Indication: PRODUCT USED FOR UNKNOWN INDICATION
     Route: 061
  9. UNKNOWN MEDICATION [Concomitant]
     Indication: HYPERTENSION
  10. AMLODIPINE [Concomitant]
     Dosage: 1/2-2MG TAB DAILY
  11. CO Q 10 [Concomitant]
     Indication: PRODUCT USED FOR UNKNOWN INDICATION
     Dosage: DAILY
     Route: 048
  12. HUMIRA [Suspect]
     Indication: PSORIASIS
     Route: 058
     Dates: start: 20120423, end: 20120611
  13. FUROSEMIDE [Concomitant]
     Indication: HYPERTENSION
     Dosage: 40 MG EVERY MORNING
     Route: 048
  14. AMLODIPINE [Concomitant]
     Indication: HYPERTENSION
     Dosage: 5 MG EVERY EVENING
  15. ASCORBIC ACID [Concomitant]
     Indication: PRODUCT USED FOR UNKNOWN INDICATION
     Dosage: DAILY
     Route: 048
  16. CARVEDILOL [Concomitant]
     Indication: CARDIAC DISORDER
  17. BIDIL [Concomitant]
     Indication: CARDIAC DISORDER
  18. SIMVASTATIN [Concomitant]
     Indication: BLOOD CHOLESTEROL INCREASED
     Dosage: 20 MG AT BEDTIME
  19. METHOTREXATE [Concomitant]
     Indication: PRODUCT USED FOR UNKNOWN INDICATION
     Dosage: 4 TABS WEEKLY
     Route: 048
  20. POTASSIUM [Concomitant]
     Indication: MINERAL SUPPLEMENTATION
     Dosage: 20 MEQ EVERY MORNING
  21. BIDIL [Concomitant]
     Indication: HYPERTENSION
     Dosage: 1/2 TAB DAILY
  22. HUMIRA [Suspect]
     Route: 058
     Dates: start: 20120430, end: 20120430
  23. LISINOPRIL [Concomitant]
     Indication: HYPERTENSION
     Route: 048
  24. ASPIRIN [Concomitant]
     Indication: THROMBOSIS PROPHYLAXIS
     Dosage: 4 TABLETS AT BEDTIME
  25. ASPIRIN [Concomitant]
  26. PLAVIX [Concomitant]
     Indication: THROMBOSIS PROPHYLAXIS
     Dosage: DAILY
     Route: 048
  27. POTASSIUM [Concomitant]
     Indication: ELECTROLYTE SUBSTITUTION THERAPY
  28. STOOL SOFTENER [Concomitant]
     Indication: PRODUCT USED FOR UNKNOWN INDICATION
  29. NITROSTAT [Concomitant]
     Indication: CHEST PAIN
     Route: 060

REACTIONS (16)
  - CAROTID ARTERY STENT INSERTION [None]
  - ABDOMINAL PAIN UPPER [None]
  - FOREIGN BODY IN EYE [None]
  - CEREBROVASCULAR ACCIDENT [None]
  - AMNESIA [None]
  - ROAD TRAFFIC ACCIDENT [None]
  - UPPER LIMB FRACTURE [None]
  - RASH [None]
  - PSORIASIS [None]
  - INSOMNIA [None]
  - EXFOLIATIVE RASH [None]
  - ATRIAL FIBRILLATION [None]
  - SKIN EXFOLIATION [None]
  - FEELING ABNORMAL [None]
  - ERYTHEMA [None]
  - BLOOD PRESSURE DECREASED [None]
